FAERS Safety Report 5047635-3 (Version None)
Quarter: 2006Q3

REPORT INFORMATION
  Report Type: 
  Country: None (occurrence: None)
  Receive Date: 20060705
  Receipt Date: 20060619
  Transmission Date: 20061208
  Serious: Yes (Other)
  Sender: FDA-Public Use
  Company Number: DSA_28356_2006

PATIENT
  Age: 55 Year
  Sex: Female

DRUGS (10)
  1. ATIVAN [Suspect]
     Indication: STRESS
     Dosage: VAR PRN PO
     Route: 048
     Dates: start: 20051001, end: 20051201
  2. ATIVAN [Suspect]
     Indication: STRESS
     Dosage: VAR PRN PO
     Route: 048
     Dates: start: 20051201
  3. ATIVAN [Suspect]
     Indication: STRESS
     Dosage: VAR PRN PO/A FEW YEARS
     Route: 048
     Dates: end: 20051001
  4. LORAZEPAM [Suspect]
     Indication: STRESS
     Dosage: VAR PRN PO
     Route: 048
     Dates: start: 20051201
  5. INSULIN [Concomitant]
  6. PEPCID AC [Concomitant]
  7. THEOPHYLLINE [Concomitant]
  8. PROVENTIL [Concomitant]
  9. GAS X [Concomitant]
  10. .. [Concomitant]

REACTIONS (10)
  - BLOOD GLUCOSE INCREASED [None]
  - CONDITION AGGRAVATED [None]
  - DRUG INEFFECTIVE [None]
  - GASTRIC DISORDER [None]
  - INCORRECT DOSE ADMINISTERED [None]
  - MUCOSAL DRYNESS [None]
  - RESPIRATORY TRACT INFECTION [None]
  - SINUS DISORDER [None]
  - THERAPEUTIC RESPONSE UNEXPECTED WITH DRUG SUBSTITUTION [None]
  - WRONG TECHNIQUE IN DRUG USAGE PROCESS [None]
